FAERS Safety Report 4448127-2 (Version None)
Quarter: 2004Q3

REPORT INFORMATION
  Report Type: 
  Country: None (occurrence: None)
  Receive Date: 20040813
  Receipt Date: 20040420
  Transmission Date: 20050211
  Serious: Yes (Other)
  Sender: FDA-Public Use
  Company Number: S04-USA-02270-01

PATIENT
  Age: 78 Year

DRUGS (2)
  1. NAMENDA [Suspect]
     Dosage: 10 MG QD PO
     Route: 048
     Dates: start: 20040301
  2. ARICEPT [Suspect]
     Dates: start: 20020101

REACTIONS (1)
  - CEREBRAL HAEMORRHAGE [None]
